FAERS Safety Report 15889159 (Version 1)
Quarter: 2019Q1

REPORT INFORMATION
  Report Type: Spontaneous
  Country: US (occurrence: US)
  Receive Date: 20190130
  Receipt Date: 20190130
  Transmission Date: 20190417
  Serious: Yes (Other)
  Sender: FDA-Public Use
  Company Number: US-ASTRAZENECA-2019SE17048

PATIENT
  Sex: Female

DRUGS (1)
  1. FASENRA [Suspect]
     Active Substance: BENRALIZUMAB
     Dosage: ONCE EVERY 4 WEEKS FOR THE FIRST 3 DOSES, AND THEN ONCE EVERY 8 WEEKS THEREAFTER
     Route: 058

REACTIONS (2)
  - Exposure during pregnancy [Not Recovered/Not Resolved]
  - Abortion spontaneous [Not Recovered/Not Resolved]
